FAERS Safety Report 8179468-3 (Version None)
Quarter: 2012Q1

REPORT INFORMATION
  Report Type: 
  Country: None (occurrence: None)
  Receive Date: 20120302
  Receipt Date: 20120222
  Transmission Date: 20120608
  Serious: Yes (Other)
  Sender: FDA-Public Use
  Company Number: US-JNJFOC-20120211402

PATIENT
  Age: 9 Year
  Sex: Male
  Weight: 46.27 kg

DRUGS (3)
  1. CONCERTA [Suspect]
     Route: 048
     Dates: end: 20120101
  2. CONCERTA [Suspect]
     Indication: ATTENTION DEFICIT/HYPERACTIVITY DISORDER
     Route: 048
     Dates: start: 20120101, end: 20120217
  3. CONCERTA [Suspect]
     Route: 048
     Dates: start: 20100101

REACTIONS (3)
  - THERAPEUTIC RESPONSE DECREASED [None]
  - SOMNOLENCE [None]
  - TOURETTE'S DISORDER [None]
